FAERS Safety Report 6215192-1 (Version None)
Quarter: 2009Q2

REPORT INFORMATION
  Report Type: 
  Country: None (occurrence: None)
  Receive Date: 20090529
  Receipt Date: 20090522
  Transmission Date: 20091009
  Serious: Yes (Life-Threatening)
  Sender: FDA-Public Use
  Company Number: 20090190

PATIENT
  Age: 72 Year
  Sex: Female

DRUGS (1)
  1. VENOFER [Suspect]
     Indication: ANAEMIA POSTOPERATIVE
     Dosage: 300 MG/DAY INTRAVENOUS
     Route: 042
     Dates: start: 20090422, end: 20090422

REACTIONS (3)
  - DYSPNOEA [None]
  - HYPOCAPNIA [None]
  - HYPOXIA [None]
